FAERS Safety Report 8966871 (Version 1)
Quarter: 2012Q4

REPORT INFORMATION
  Report Type: 
  Country: CA (occurrence: CA)
  Receive Date: 20121214
  Receipt Date: 20121214
  Transmission Date: 20130627
  Serious: Yes (Other)
  Sender: FDA-Public Use
  Company Number: CA-BAXTER-2012BAX026557

PATIENT
  Age: 13 Year
  Sex: Female

DRUGS (3)
  1. PHYSIONEAL 40 GLUCOSE 1.36% W/V / 13.6 MG/ML [Suspect]
     Indication: PERITONEAL DIALYSIS
     Route: 033
     Dates: start: 20120905
  2. PHYSIONEAL 40 GLUCOSE 2.27% W/V / 22.7 MG/ML [Suspect]
     Indication: PERITONEAL DIALYSIS
     Route: 033
     Dates: start: 20120905
  3. EXTRANEAL [Suspect]
     Indication: PERITONEAL DIALYSIS
     Route: 033
     Dates: start: 20120905

REACTIONS (3)
  - Focal segmental glomerulosclerosis [Not Recovered/Not Resolved]
  - Proteinuria [Not Recovered/Not Resolved]
  - Anuria [Not Recovered/Not Resolved]
